FAERS Safety Report 18207244 (Version 1)
Quarter: 2020Q3

REPORT INFORMATION
  Report Type: Spontaneous
  Country: US (occurrence: US)
  Receive Date: 20200827
  Receipt Date: 20200827
  Transmission Date: 20201103
  Serious: Yes (Life-Threatening, Disabling)
  Sender: FDA-Public Use
  Company Number: None

PATIENT
  Age: 69 Year
  Sex: Male
  Weight: 108.3 kg

DRUGS (2)
  1. ALTEPLASE. [Suspect]
     Active Substance: ALTEPLASE
     Indication: ISCHAEMIC STROKE
     Route: 042
     Dates: start: 20200826, end: 20200826
  2. DIPHENHYDRAMINE. [Concomitant]
     Active Substance: DIPHENHYDRAMINE
     Dates: start: 20200826, end: 20200826

REACTIONS (10)
  - Urticaria [None]
  - Blood pressure systolic decreased [None]
  - Pallor [None]
  - Flushing [None]
  - Unresponsive to stimuli [None]
  - Hyperhidrosis [None]
  - Carotid artery stenosis [None]
  - Bradycardia [None]
  - Vomiting [None]
  - Hypersensitivity [None]

NARRATIVE: CASE EVENT DATE: 20200826
